FAERS Safety Report 9640711 (Version 1)
Quarter: 2013Q4

REPORT INFORMATION
  Report Type: Report from Study
  Country: US (occurrence: US)
  Receive Date: 20131023
  Receipt Date: 20131023
  Transmission Date: 20140711
  Serious: No
  Sender: FDA-Public Use
  Company Number: US-ABBVIE-12P-163-1014056-00

PATIENT
  Age: 24 Year
  Sex: Female
  Weight: 45.4 kg

DRUGS (6)
  1. LUPRON DEPOT [Suspect]
     Indication: ENDOMETRIOSIS
     Route: 030
     Dates: start: 20121002
  2. TOPAMAX [Concomitant]
     Indication: CONVULSION
     Route: 048
  3. FROVA [Concomitant]
     Indication: MIGRAINE
     Route: 048
  4. DETROL [Concomitant]
     Indication: HYPERTONIC BLADDER
     Route: 048
     Dates: start: 2004
  5. PRISTIQ [Concomitant]
     Indication: DEPRESSION
     Dosage: 50 MG DAILY
     Route: 048
  6. UNKNOWN NAUSEA MEDICATION [Concomitant]
     Indication: PRODUCT USED FOR UNKNOWN INDICATION

REACTIONS (4)
  - Arthralgia [Not Recovered/Not Resolved]
  - Vaginal haemorrhage [Unknown]
  - Vaginal lesion [Recovering/Resolving]
  - Nausea [Unknown]
